FAERS Safety Report 8013547-6 (Version None)
Quarter: 2011Q4

REPORT INFORMATION
  Report Type: 
  Country: None (occurrence: None)
  Receive Date: 20111229
  Receipt Date: 20111227
  Transmission Date: 20120403
  Serious: Yes (Hospitalization)
  Sender: FDA-Public Use
  Company Number: ES-PFIZER INC-2011313662

PATIENT
  Age: 38 Year
  Sex: Female
  Weight: 82 kg

DRUGS (1)
  1. DOSTINEX [Suspect]
     Indication: LACTATION INHIBITION THERAPY
     Dosage: 0.25 MG, 2X/DAY
     Route: 048
     Dates: start: 20111021, end: 20111023

REACTIONS (2)
  - PLEURAL EFFUSION [None]
  - PERICARDIAL EFFUSION [None]
